FAERS Safety Report 5115433-8 (Version None)
Quarter: 2006Q3

REPORT INFORMATION
  Report Type: 
  Country: None (occurrence: None)
  Receive Date: 20060922
  Receipt Date: 20060907
  Transmission Date: 20061208
  Serious: Yes (Disabling)
  Sender: FDA-Public Use
  Company Number: 2006112219

PATIENT
  Age: 86 Year
  Sex: Male

DRUGS (4)
  1. LYRICA [Suspect]
     Indication: PAIN
     Dosage: 300 MG (1 IN 1 D)
  2. ZOLPIDEM TARTRATE [Concomitant]
  3. ZOPICLONE (ZOPICLONE) [Concomitant]
  4. ALL  OTHER THERAPEUTIC PRODUCTS (ALL OTHER THERAPEUTIC PRODUCTS) [Concomitant]

REACTIONS (3)
  - GAIT DISTURBANCE [None]
  - INADEQUATE ANALGESIA [None]
  - PAIN IN EXTREMITY [None]
